FAERS Safety Report 14587026 (Version 2)
Quarter: 2018Q1

REPORT INFORMATION
  Report Type: Spontaneous
  Country: US (occurrence: US)
  Receive Date: 20180301
  Receipt Date: 20180301
  Transmission Date: 20180509
  Serious: Yes (Other)
  Sender: FDA-Public Use
  Company Number: US-SHIRE-US201807942

PATIENT
  Sex: Female

DRUGS (4)
  1. HUMIRA [Suspect]
     Active Substance: ADALIMUMAB
     Dosage: UNK
     Route: 058
  2. LIALDA [Suspect]
     Active Substance: MESALAMINE
     Indication: CROHN^S DISEASE
     Route: 058
  3. PREDNISONE. [Concomitant]
     Active Substance: PREDNISONE
     Indication: PRODUCT USED FOR UNKNOWN INDICATION
  4. HUMIRA [Suspect]
     Active Substance: ADALIMUMAB
     Indication: CROHN^S DISEASE
     Dosage: UNK
     Route: 058

REACTIONS (8)
  - Rheumatoid arthritis [Unknown]
  - Constipation [Unknown]
  - Abdominal pain [Unknown]
  - Crohn^s disease [Unknown]
  - Drug effect incomplete [Unknown]
  - Diarrhoea haemorrhagic [Recovered/Resolved]
  - Intestinal obstruction [Unknown]
  - Drug specific antibody [Unknown]

NARRATIVE: CASE EVENT DATE: 2016
